FAERS Safety Report 8808862 (Version 1)
Quarter: 2012Q4

REPORT INFORMATION
  Report Type: Spontaneous
  Country: US (occurrence: None)
  Receive Date: 20120921
  Receipt Date: 20120921
  Transmission Date: 20130627
  Serious: No
  Sender: FDA-Public Use
  Company Number: None

PATIENT
  Age: 61 Year
  Sex: Female
  Weight: 81.65 kg

DRUGS (1)
  1. VALACYCLOVIR [Suspect]
     Indication: COLD SORES
     Dates: start: 20120914, end: 20120918

REACTIONS (5)
  - Oral herpes [None]
  - Paraesthesia [None]
  - Condition aggravated [None]
  - No therapeutic response [None]
  - Product counterfeit [None]
